FAERS Safety Report 7394020-5 (Version None)
Quarter: 2011Q2

REPORT INFORMATION
  Report Type: 
  Country: None (occurrence: None)
  Receive Date: 20110405
  Receipt Date: 20101116
  Transmission Date: 20111010
  Serious: No
  Sender: FDA-Public Use
  Company Number: US-AMGEN-USASP2010005628

PATIENT
  Age: 35 Year
  Sex: Male

DRUGS (3)
  1. NEULASTA [Suspect]
     Indication: CHEMOTHERAPY
     Dosage: 6 MG, UNK
     Dates: start: 20100101
  2. NEULASTA [Suspect]
     Dates: start: 20100101
  3. NEULASTA [Suspect]
     Dosage: 6 MG, UNK
     Dates: start: 20100101

REACTIONS (2)
  - MOTOR DYSFUNCTION [None]
  - ASTHENIA [None]
